FAERS Safety Report 11599548 (Version 1)
Quarter: 2015Q4

REPORT INFORMATION
  Report Type: Spontaneous
  Country: US (occurrence: US)
  Receive Date: 20151006
  Receipt Date: 20151006
  Transmission Date: 20160304
  Serious: No
  Sender: FDA-Public Use
  Company Number: US-ASTRAZENECA-2015SE92835

PATIENT
  Sex: Female
  Weight: 61.2 kg

DRUGS (4)
  1. RAMIPRIL. [Concomitant]
     Active Substance: RAMIPRIL
     Indication: PROPHYLAXIS
     Route: 048
  2. KOMBIGLYZE XR [Suspect]
     Active Substance: METFORMIN HYDROCHLORIDE\SAXAGLIPTIN HYDROCHLORIDE
     Indication: TYPE 2 DIABETES MELLITUS
     Dosage: 2.5MG/1000MG, TWO TABLETS ONCE A DAY
     Route: 048
     Dates: start: 2014
  3. GLIMEPIRIDE. [Concomitant]
     Active Substance: GLIMEPIRIDE
     Indication: TYPE 2 DIABETES MELLITUS
     Route: 048
  4. CALTRATE WITH VITAMIN D3 [Concomitant]
     Dosage: DAILY
     Route: 048

REACTIONS (8)
  - Heart rate increased [Unknown]
  - Heart rate irregular [Recovered/Resolved with Sequelae]
  - Fatigue [Unknown]
  - Dizziness [Unknown]
  - Arthralgia [Unknown]
  - Blood glucose increased [Not Recovered/Not Resolved]
  - Headache [Unknown]
  - Blood glucose decreased [Recovered/Resolved]
